FAERS Safety Report 23856521 (Version 1)
Quarter: 2024Q2

REPORT INFORMATION
  Report Type: Spontaneous
  Country: US (occurrence: US)
  Receive Date: 20240515
  Receipt Date: 20240515
  Transmission Date: 20240715
  Serious: Yes (Other)
  Sender: FDA-Public Use
  Company Number: US-ADVANZ PHARMA-202405004036

PATIENT

DRUGS (4)
  1. HYDROXYCHLOROQUINE [Suspect]
     Active Substance: HYDROXYCHLOROQUINE
     Indication: Systemic lupus erythematosus
     Dosage: 400 MG, QD (DAILY)
  2. PREDNISOLONE [Suspect]
     Active Substance: PREDNISOLONE
     Indication: Retinal toxicity
     Dosage: UNK UNK, TID (PREDNISOLONE ACETATE)
     Route: 061
  3. PREDNISOLONE [Suspect]
     Active Substance: PREDNISOLONE
     Indication: Toxicity to various agents
  4. PREDNISOLONE [Suspect]
     Active Substance: PREDNISOLONE
     Indication: Cystoid macular oedema

REACTIONS (5)
  - Cystoid macular oedema [Recovering/Resolving]
  - Toxicity to various agents [Recovering/Resolving]
  - Retinal toxicity [Recovering/Resolving]
  - Maculopathy [Unknown]
  - Drug ineffective [Unknown]
